FAERS Safety Report 8854778 (Version 2)
Quarter: 2012Q4

REPORT INFORMATION
  Report Type: 
  Country: GB (occurrence: IE)
  Receive Date: 20121023
  Receipt Date: 20121112
  Transmission Date: 20130627
  Serious: Yes (Other)
  Sender: FDA-Public Use
  Company Number: IE-BRISTOL-MYERS SQUIBB COMPANY-17034083

PATIENT
  Age: 47 Year
  Sex: Female

DRUGS (1)
  1. YERVOY [Suspect]
     Dosage: 1st cycle:17Aug12 and second cycle:07Sep12.
     Dates: start: 20120817

REACTIONS (1)
  - Autoimmune hepatitis [Unknown]
